FAERS Safety Report 20881851 (Version 1)
Quarter: 2022Q2

REPORT INFORMATION
  Report Type: Other
  Country: JP (occurrence: None)
  Receive Date: 20220527
  Receipt Date: 20220527
  Transmission Date: 20220721
  Serious: Yes (Other)
  Sender: FDA-Public Use
  Company Number: JP-Umedica-000285

PATIENT
  Age: 23 Year
  Sex: Male

DRUGS (1)
  1. SILDENAFIL [Suspect]
     Active Substance: SILDENAFIL
     Indication: Product used for unknown indication
     Dosage: 100 MG DAILY

REACTIONS (6)
  - Retinal toxicity [Recovering/Resolving]
  - Overdose [Recovering/Resolving]
  - Suicide attempt [Unknown]
  - Colour blindness [Recovering/Resolving]
  - Photophobia [Recovering/Resolving]
  - Vision blurred [Recovering/Resolving]
